FAERS Safety Report 23139750 (Version 1)
Quarter: 2023Q4

REPORT INFORMATION
  Report Type: Spontaneous
  Country: US (occurrence: US)
  Receive Date: 20231102
  Receipt Date: 20231102
  Transmission Date: 20240109
  Serious: Yes (Other)
  Sender: FDA-Public Use
  Company Number: US-SCA PHARMACEUTICALS-2022SCA00006

PATIENT
  Age: 60 Year
  Sex: Female
  Weight: 69.9 kg

DRUGS (12)
  1. PHENYLEPHRINE HYDROCHLORIDE [Suspect]
     Active Substance: PHENYLEPHRINE HYDROCHLORIDE
     Indication: Hypotension
     Dosage: 50 ?G, AS NEEDED
     Route: 040
     Dates: start: 20220218, end: 2022
  2. ALPRAZOLAM [Concomitant]
     Active Substance: ALPRAZOLAM
  3. DEXLANSOPRAZOLE [Concomitant]
     Active Substance: DEXLANSOPRAZOLE
  4. DULOXETINE [Concomitant]
     Active Substance: DULOXETINE
  5. FAMOTIDINE [Concomitant]
     Active Substance: FAMOTIDINE
  6. TRELEGY ELLIPTA [Concomitant]
     Active Substance: FLUTICASONE FUROATE\UMECLIDINIUM BROMIDE\VILANTEROL TRIFENATATE
  7. HYDRALAZINE [Concomitant]
     Active Substance: HYDRALAZINE HYDROCHLORIDE
  8. INSULIN GLARGINE [Concomitant]
     Active Substance: INSULIN GLARGINE
  9. METOCLOPRAMIDE [Concomitant]
     Active Substance: METOCLOPRAMIDE
  10. METOPROLOL [Concomitant]
     Active Substance: METOPROLOL
  11. SITAGLIPTIN [Concomitant]
     Active Substance: SITAGLIPTIN
  12. PREDNISONE [Concomitant]
     Active Substance: PREDNISONE

REACTIONS (2)
  - Heart rate decreased [Recovered/Resolved]
  - Blood pressure systolic increased [Recovered/Resolved]

NARRATIVE: CASE EVENT DATE: 20220201
